FAERS Safety Report 20952516 (Version 1)
Quarter: 2022Q2

REPORT INFORMATION
  Report Type: Spontaneous
  Country: US (occurrence: None)
  Receive Date: 20220612
  Receipt Date: 20220612
  Transmission Date: 20220721
  Serious: Yes (Disabling)
  Sender: FDA-Public Use
  Company Number: None

PATIENT
  Age: 43 Year
  Sex: Male
  Weight: 112.5 kg

DRUGS (4)
  1. EMGALITY [Suspect]
     Active Substance: GALCANEZUMAB-GNLM
     Indication: Migraine
     Dosage: OTHER QUANTITY : 1 INJECTION(S);?OTHER FREQUENCY : 1 PER MONTH;?OTHER ROUTE : AUTO-INJECTED INTO THI
     Route: 050
     Dates: start: 20201015, end: 20211215
  2. WELLBUTRIN [Concomitant]
     Active Substance: BUPROPION HYDROCHLORIDE
  3. LAMICTAL [Concomitant]
  4. SYNTHROID [Concomitant]

REACTIONS (5)
  - Arthralgia [None]
  - Myalgia [None]
  - Headache [None]
  - Therapy cessation [None]
  - Spinal pain [None]

NARRATIVE: CASE EVENT DATE: 20220201
